FAERS Safety Report 4793553-5 (Version None)
Quarter: 2005Q4

REPORT INFORMATION
  Report Type: 
  Country: None (occurrence: None)
  Receive Date: 20051011
  Receipt Date: 20050608
  Transmission Date: 20060501
  Serious: Yes (Hospitalization)
  Sender: FDA-Public Use
  Company Number: PHBS2005JP08069

PATIENT
  Age: 80 Year
  Sex: Female

DRUGS (4)
  1. AROMASIN [Concomitant]
  2. XELODA [Concomitant]
  3. MS CONTIN [Concomitant]
  4. AREDIA [Suspect]
     Indication: METASTASES TO BONE
     Dosage: 90 MG, ONCE/SINGLE
     Dates: start: 20050603

REACTIONS (2)
  - ERYTHEMA [None]
  - EXCORIATION [None]
